FAERS Safety Report 12185140 (Version 5)
Quarter: 2023Q2

REPORT INFORMATION
  Report Type: Spontaneous
  Country: US (occurrence: US)
  Receive Date: 20160316
  Receipt Date: 20230420
  Transmission Date: 20230722
  Serious: Yes (Other)
  Sender: FDA-Public Use
  Company Number: US-PFIZER INC-2016155329

PATIENT
  Age: 76 Year
  Sex: Female
  Weight: 49.887 kg

DRUGS (6)
  1. XELJANZ [Suspect]
     Active Substance: TOFACITINIB CITRATE
     Indication: Rheumatoid arthritis
     Dosage: 5 MG, 1X/DAY
     Route: 048
     Dates: start: 20160118
  2. XELJANZ [Suspect]
     Active Substance: TOFACITINIB CITRATE
     Dosage: 5 MG, 2X/DAY
     Route: 048
     Dates: start: 201602
  3. XELJANZ [Suspect]
     Active Substance: TOFACITINIB CITRATE
     Dosage: 5 MG, 2X/DAY
     Route: 048
  4. THYROGLOBULIN [Concomitant]
     Active Substance: THYROGLOBULIN
     Indication: Hypothyroidism
     Dosage: 2 GRAINS A DAY
     Route: 048
     Dates: start: 2000
  5. THYROGLOBULIN [Concomitant]
     Active Substance: THYROGLOBULIN
     Indication: Rheumatoid arthritis
  6. PROLIA [Concomitant]
     Active Substance: DENOSUMAB
     Indication: Osteoporosis
     Dosage: 3 DF, UNK (EVERY SIX MONTHS)

REACTIONS (6)
  - Thrombosis [Unknown]
  - Conjunctivitis [Not Recovered/Not Resolved]
  - Blepharospasm [Not Recovered/Not Resolved]
  - Visual impairment [Not Recovered/Not Resolved]
  - Headache [Unknown]
  - Respiration abnormal [Unknown]

NARRATIVE: CASE EVENT DATE: 20160201
